FAERS Safety Report 12454347 (Version 1)
Quarter: 2016Q2

REPORT INFORMATION
  Report Type: Spontaneous
  Country: US (occurrence: US)
  Receive Date: 20160610
  Receipt Date: 20160610
  Transmission Date: 20160815
  Serious: Yes (Other)
  Sender: FDA-Public Use
  Company Number: US-STRIDES ARCOLAB LIMITED-2016SP001179

PATIENT

DRUGS (4)
  1. LAMIVUDINE. [Suspect]
     Active Substance: LAMIVUDINE
     Indication: PRODUCT USED FOR UNKNOWN INDICATION
     Dosage: UNK
  2. ACETAMINOPHEN. [Suspect]
     Active Substance: ACETAMINOPHEN
     Indication: PRODUCT USED FOR UNKNOWN INDICATION
     Dosage: UNK
  3. NEVIRAPINE. [Suspect]
     Active Substance: NEVIRAPINE
     Indication: PRODUCT USED FOR UNKNOWN INDICATION
     Dosage: UNK
  4. ZIDOVUDINE. [Suspect]
     Active Substance: ZIDOVUDINE
     Indication: PRODUCT USED FOR UNKNOWN INDICATION
     Dosage: UNK

REACTIONS (6)
  - Acute hepatic failure [Unknown]
  - Aspartate aminotransferase increased [Unknown]
  - Blood bilirubin increased [Unknown]
  - Drug-induced liver injury [Unknown]
  - Alanine aminotransferase increased [Unknown]
  - Platelet count decreased [Unknown]
